FAERS Safety Report 9961541 (Version 1)
Quarter: 2014Q1

REPORT INFORMATION
  Report Type: Spontaneous
  Country: GB (occurrence: GB)
  Receive Date: 20140305
  Receipt Date: 20140305
  Transmission Date: 20141002
  Serious: Yes (Other)
  Sender: FDA-Public Use
  Company Number: GB-VERTEX PHARMACEUTICALS INC-2014-001078

PATIENT
  Sex: 0

DRUGS (6)
  1. INCIVO [Suspect]
     Indication: HEPATITIS C
     Route: 048
     Dates: start: 20140110, end: 20140213
  2. PEGINTERFERON ALFA-2A [Concomitant]
     Dosage: UNK
     Route: 065
  3. RIBAVIRIN [Concomitant]
     Dosage: UNK
     Route: 065
  4. PARACETAMOL [Concomitant]
     Dosage: UNK
     Route: 065
  5. CETIRIZINE [Concomitant]
     Dosage: UNK
     Route: 065
  6. METOCLOPRAMIDE [Concomitant]
     Dosage: UNK
     Route: 065

REACTIONS (1)
  - Drug eruption [Unknown]
